FAERS Safety Report 6431699-6 (Version None)
Quarter: 2009Q4

REPORT INFORMATION
  Report Type: 
  Country: None (occurrence: None)
  Receive Date: 20091103
  Receipt Date: 20091019
  Transmission Date: 20100525
  Serious: Yes (Hospitalization)
  Sender: FDA-Public Use
  Company Number: 02100-JPN-05-0428

PATIENT
  Age: 70 Year
  Sex: Male
  Weight: 51.7 kg

DRUGS (5)
  1. PLETAL [Suspect]
     Indication: CEREBRAL INFARCTION
     Dosage: 100 MG, BID ORAL
     Route: 048
     Dates: start: 20040831, end: 20050830
  2. MAGLAX (MAGNESIUM OXIDE) [Concomitant]
  3. ACTONEL (SODIUM RISEDRONATE HYDRATE) [Concomitant]
  4. DIOVAN [Concomitant]
  5. CELESTAMINE TAB [Concomitant]

REACTIONS (6)
  - GASTRIC ULCER HAEMORRHAGE [None]
  - HAEMATOCRIT DECREASED [None]
  - HAEMOGLOBIN DECREASED [None]
  - LUMBAR VERTEBRAL FRACTURE [None]
  - RED BLOOD CELL COUNT DECREASED [None]
  - URINARY TRACT INFECTION [None]
